FAERS Safety Report 7367754-6 (Version None)
Quarter: 2011Q1

REPORT INFORMATION
  Report Type: 
  Country: None (occurrence: None)
  Receive Date: 20110322
  Receipt Date: 20110311
  Transmission Date: 20110831
  Serious: Yes (Other)
  Sender: FDA-Public Use
  Company Number: IT-TEVA-271539ISR

PATIENT
  Sex: Male

DRUGS (1)
  1. PACLITAXEL [Suspect]
     Indication: METASTATIC CARCINOMA OF THE BLADDER
     Dosage: 250 MG
     Route: 042
     Dates: start: 20110215, end: 20110215

REACTIONS (5)
  - HYPERHIDROSIS [None]
  - HYPERTENSIVE CRISIS [None]
  - NAUSEA [None]
  - MALAISE [None]
  - BACK PAIN [None]
